FAERS Safety Report 7186476-8 (Version None)
Quarter: 2010Q4

REPORT INFORMATION
  Report Type: 
  Country: None (occurrence: None)
  Receive Date: 20101222
  Receipt Date: 20101214
  Transmission Date: 20110411
  Serious: Yes (Other)
  Sender: FDA-Public Use
  Company Number: US-PFIZER INC-2010171642

PATIENT
  Sex: Female

DRUGS (3)
  1. LYRICA [Suspect]
     Indication: BACK DISORDER
     Dosage: 25 MG, 2X/DAY
     Route: 048
     Dates: start: 20101201
  2. LYRICA [Suspect]
     Indication: SCIATICA
  3. WARFARIN SODIUM [Concomitant]
     Dosage: UNK
     Route: 048

REACTIONS (1)
  - OEDEMA PERIPHERAL [None]
